FAERS Safety Report 10134527 (Version 1)
Quarter: 2014Q2

REPORT INFORMATION
  Report Type: Spontaneous
  Country: US (occurrence: US)
  Receive Date: 20140428
  Receipt Date: 20140428
  Transmission Date: 20141212
  Serious: No
  Sender: FDA-Public Use
  Company Number: US-PFIZER INC-2014116432

PATIENT
  Age: 48 Year
  Sex: Female
  Weight: 104 kg

DRUGS (9)
  1. XELJANZ [Suspect]
     Indication: RHEUMATOID ARTHRITIS
     Dosage: 5 MG, 2X/DAY
     Route: 048
  2. ESTRADIOL [Concomitant]
     Dosage: UNK
  3. GLIPIZIDE [Concomitant]
     Dosage: UNK
  4. IMURAN [Concomitant]
     Dosage: UNK
  5. LEVOTHYROXINE [Concomitant]
     Dosage: UNK
  6. LORTAB [Concomitant]
     Dosage: UNK
  7. METFORMIN [Concomitant]
     Dosage: UNK
  8. PREDNISONE [Concomitant]
     Dosage: UNK
  9. VICTOZA [Concomitant]
     Dosage: UNK

REACTIONS (4)
  - Influenza [Unknown]
  - Pain in extremity [Unknown]
  - Nodule [Unknown]
  - Night sweats [Unknown]
